FAERS Safety Report 6447148-8 (Version None)
Quarter: 2009Q4

REPORT INFORMATION
  Report Type: 
  Country: None (occurrence: None)
  Receive Date: 20091119
  Receipt Date: 20091112
  Transmission Date: 20100525
  Serious: Yes (Other)
  Sender: FDA-Public Use
  Company Number: JP-SANOFI-AVENTIS-200912188JP

PATIENT
  Age: 33 Year
  Sex: Female
  Weight: 51 kg

DRUGS (11)
  1. ENOXAPARIN SODIUM [Suspect]
     Dosage: DOSE UNIT: 2000 IU
     Route: 058
     Dates: start: 20090529, end: 20090607
  2. RHEUMATREX [Concomitant]
     Indication: RHEUMATOID ARTHRITIS
     Route: 048
     Dates: start: 20090526
  3. LORCAM [Concomitant]
     Indication: RHEUMATOID ARTHRITIS
     Route: 048
     Dates: start: 20090526
  4. FOLIAMIN [Concomitant]
     Route: 048
     Dates: start: 20090526
  5. FAMOTIDINE [Concomitant]
     Indication: PROPHYLAXIS
     Route: 048
     Dates: start: 20090526
  6. FERROMIA [Concomitant]
     Route: 048
     Dates: start: 20090526
  7. ALMYLAR [Concomitant]
     Indication: HYPERTENSION
     Route: 048
     Dates: start: 20090526
  8. BLOPRESS [Concomitant]
     Indication: HYPERTENSION
     Route: 048
     Dates: start: 20090526
  9. MUCOSTA [Concomitant]
     Indication: PROPHYLAXIS
     Route: 048
     Dates: start: 20090526
  10. GASTER D [Concomitant]
     Indication: PROPHYLAXIS
     Route: 048
     Dates: start: 20090526
  11. LOXONIN [Concomitant]
     Indication: RHEUMATOID ARTHRITIS
     Route: 048
     Dates: start: 20090526

REACTIONS (1)
  - HEPATIC ENZYME INCREASED [None]
